FAERS Safety Report 19146566 (Version 2)
Quarter: 2021Q2

REPORT INFORMATION
  Report Type: Spontaneous
  Country: SA (occurrence: SA)
  Receive Date: 20210416
  Receipt Date: 20210427
  Transmission Date: 20210717
  Serious: Yes (Death, Life-Threatening, Hospitalization, Other)
  Sender: FDA-Public Use
  Company Number: SA-MACLEODS PHARMACEUTICALS US LTD-MAC2021030791

PATIENT

DRUGS (1)
  1. TRAMADOL 50 MG TABLETS [Suspect]
     Active Substance: TRAMADOL
     Indication: SICKLE CELL ANAEMIA WITH CRISIS
     Dosage: 50 MILLIGRAM, QD
     Route: 048

REACTIONS (2)
  - Moyamoya disease [Unknown]
  - Brain death [Fatal]
